FAERS Safety Report 18327851 (Version 8)
Quarter: 2021Q3

REPORT INFORMATION
  Report Type: Report from Study
  Country: US (occurrence: US)
  Receive Date: 20200929
  Receipt Date: 20210814
  Transmission Date: 20211014
  Serious: Yes (Other)
  Sender: FDA-Public Use
  Company Number: US-SHIRE-US202031719

PATIENT
  Sex: Female
  Weight: 104 kg

DRUGS (17)
  1. ACETAMINOPHEN. [Concomitant]
     Active Substance: ACETAMINOPHEN
  2. DIPHENHYDRAMINE. [Concomitant]
     Active Substance: DIPHENHYDRAMINE
  3. EPINEPHRINE. [Concomitant]
     Active Substance: EPINEPHRINE
  4. PLAQUENIL [HYDROXYCHLOROQUINE PHOSPHATE] [Concomitant]
     Active Substance: HYDROXYCHLOROQUINE DIPHOSPHATE
  5. GABAPENTIN. [Concomitant]
     Active Substance: GABAPENTIN
  6. ZYRTEC [Concomitant]
     Active Substance: CETIRIZINE HYDROCHLORIDE
  7. CUVITRU [Suspect]
     Active Substance: HUMAN IMMUNOGLOBULIN G
     Indication: IMMUNE RECONSTITUTION INFLAMMATORY SYNDROME
     Dosage: 16 GRAM, 1/WEEK
     Route: 058
     Dates: start: 20170815
  8. LORATADINE. [Concomitant]
     Active Substance: LORATADINE
  9. ALLEGRA [Concomitant]
     Active Substance: FEXOFENADINE HYDROCHLORIDE
  10. CUVITRU [Suspect]
     Active Substance: HUMAN IMMUNOGLOBULIN G
     Indication: IMMUNODEFICIENCY COMMON VARIABLE
     Dosage: 16 GRAM, 1/WEEK
     Route: 058
     Dates: start: 20170929
  11. ESTRACE [Concomitant]
     Active Substance: ESTRADIOL
  12. TYLENOL EXTRA STRENGTH [Concomitant]
     Active Substance: ACETAMINOPHEN
     Route: 065
  13. LIDOCAINE. [Concomitant]
     Active Substance: LIDOCAINE
  14. SYNTHROID [Concomitant]
     Active Substance: LEVOTHYROXINE SODIUM
  15. SINGULAIR [Concomitant]
     Active Substance: MONTELUKAST SODIUM
  16. PRENATAL 19 [Concomitant]
     Active Substance: .ALPHA.-TOCOPHEROL ACETATE, DL-\.BETA.-CAROTENE\ASCORBIC ACID\CALCIUM CARBONATE\CALCIUM PANTOTHENATE\CHOLECALCIFEROL\CYANOCOBALAMIN\DOCUSATE SODIUM\FERROUS FUMARATE\FOLIC ACID\NIACINAMIDE\PYRIDOXINE HYDROCHLORIDE\RIBOFLAVIN\THIAMINE MONONITRATE\ZINC OXIDE
  17. FEXOFENADINE [Concomitant]
     Active Substance: FEXOFENADINE HYDROCHLORIDE

REACTIONS (5)
  - Respiratory syncytial virus infection [Unknown]
  - Mastitis [Unknown]
  - Upper respiratory tract infection [Unknown]
  - Exposure during pregnancy [Unknown]
  - Sinusitis [Unknown]
